FAERS Safety Report 21307382 (Version 27)
Quarter: 2024Q1

REPORT INFORMATION
  Report Type: Report from Study
  Country: CN (occurrence: CN)
  Receive Date: 20220908
  Receipt Date: 20240209
  Transmission Date: 20240410
  Serious: Yes (Other)
  Sender: FDA-Public Use
  Company Number: CN-FOSUNKITE-FOSUNKITE-20220042

PATIENT
  Age: 50 Year
  Sex: Female

DRUGS (4)
  1. AXICABTAGENE CILOLEUCEL [Suspect]
     Active Substance: AXICABTAGENE CILOLEUCEL
     Indication: Non-Hodgkin^s lymphoma
     Dosage: 1.5*10^8 (NUMBER OF CAR-T CELLS)/KG
     Route: 042
     Dates: start: 20211207, end: 20211207
  2. FLUDARABINE PHOSPHATE [Concomitant]
     Active Substance: FLUDARABINE PHOSPHATE
     Indication: Lymphodepletion
     Dosage: 55 MG
     Route: 041
     Dates: start: 20211201, end: 20211203
  3. CYCLOPHOSPHAMIDE [Concomitant]
     Active Substance: CYCLOPHOSPHAMIDE
     Indication: Lymphodepletion
     Dosage: 0.92 G
     Route: 041
     Dates: start: 20211201, end: 20211203
  4. ZANUBRUTINIB [Concomitant]
     Active Substance: ZANUBRUTINIB
     Indication: Non-Hodgkin^s lymphoma
     Dosage: 160 MG, TREATMENT CYCLE 1
     Route: 048
     Dates: start: 20230130

REACTIONS (17)
  - Chronic tonsillitis [Not Recovered/Not Resolved]
  - Tonsillitis bacterial [Not Recovered/Not Resolved]
  - Myelosuppression [Recovered/Resolved]
  - Cytopenia [Recovered/Resolved]
  - Cytokine release syndrome [Recovered/Resolved]
  - Anaemia [Recovered/Resolved]
  - Platelet count decreased [Recovered/Resolved]
  - Neutrophil count decreased [Recovered/Resolved]
  - Lymphocyte count decreased [Recovered/Resolved]
  - White blood cell count decreased [Recovered/Resolved]
  - T-lymphocyte count decreased [Not Recovered/Not Resolved]
  - B-lymphocyte count decreased [Recovered/Resolved]
  - Platelet count decreased [Recovered/Resolved]
  - Natural killer cell count increased [Recovered/Resolved]
  - Neutrophil count decreased [Recovered/Resolved]
  - Neutrophil count decreased [Recovered/Resolved]
  - Interleukin level increased [Recovered/Resolved]

NARRATIVE: CASE EVENT DATE: 20211207
